FAERS Safety Report 20299271 (Version 1)
Quarter: 2022Q1

REPORT INFORMATION
  Report Type: Report from Study
  Country: US (occurrence: US)
  Receive Date: 20220105
  Receipt Date: 20220105
  Transmission Date: 20220423
  Serious: Yes (Hospitalization)
  Sender: FDA-Public Use
  Company Number: US-BAYER-2022A000333

PATIENT
  Age: 50 Year
  Sex: Female

DRUGS (1)
  1. STIVARGA [Suspect]
     Active Substance: REGORAFENIB
     Dosage: DAILY DOSE 80 MG FOR 21 DAYS
     Route: 048

REACTIONS (2)
  - Illness [Not Recovered/Not Resolved]
  - Hospitalisation [Not Recovered/Not Resolved]
